FAERS Safety Report 5760254-6 (Version None)
Quarter: 2008Q2

REPORT INFORMATION
  Report Type: 
  Country: None (occurrence: None)
  Receive Date: 20080602
  Receipt Date: 20080519
  Transmission Date: 20081010
  Serious: Yes (Hospitalization)
  Sender: FDA-Public Use
  Company Number: 08P-062-0448332

PATIENT
  Age: 1 Year
  Sex: Female

DRUGS (5)
  1. SYNAGIS [Suspect]
     Indication: IMMUNISATION
     Dosage: (1.2 MG); INJECTION; 1.3 MG; 1.32 MG; 1.37 MG
     Dates: start: 20071029, end: 20071029
  2. SYNAGIS [Suspect]
     Indication: IMMUNISATION
     Dosage: (1.2 MG); INJECTION; 1.3 MG; 1.32 MG; 1.37 MG
     Dates: start: 20071221, end: 20071221
  3. SYNAGIS [Suspect]
     Indication: IMMUNISATION
     Dosage: (1.2 MG); INJECTION; 1.3 MG; 1.32 MG; 1.37 MG
     Dates: start: 20080118, end: 20080118
  4. SYNAGIS [Suspect]
     Indication: IMMUNISATION
     Dosage: (1.2 MG); INJECTION; 1.3 MG; 1.32 MG; 1.37 MG
     Dates: start: 20080226, end: 20080226
  5. SYNAGIS [Suspect]
     Indication: IMMUNISATION
     Dosage: (1.2 MG); INJECTION; 1.3 MG; 1.32 MG; 1.37 MG
     Dates: start: 20080326, end: 20080326

REACTIONS (1)
  - BRONCHITIS CHRONIC [None]
